FAERS Safety Report 7101456-6 (Version None)
Quarter: 2010Q4

REPORT INFORMATION
  Report Type: 
  Country: None (occurrence: None)
  Receive Date: 20101108
  Receipt Date: 20101027
  Transmission Date: 20110411
  Serious: Yes (Other)
  Sender: FDA-Public Use
  Company Number: GER/UKI/10/0012342

PATIENT
  Age: 44 Year
  Sex: Male

DRUGS (6)
  1. CLOPIDOGREL [Suspect]
     Indication: MYOCARDIAL INFARCTION
     Dosage: 300 MG, ORAL
     Route: 048
  2. HEPARIN [Suspect]
     Indication: MYOCARDIAL INFARCTION
     Dosage: 18 IU/KG, 1 IN 1 HR, INTRAVENOUS
     Route: 042
  3. ASPIRIN [Suspect]
     Indication: MYOCARDIAL INFARCTION
     Dosage: 300 MG
  4. METALYSE [Suspect]
     Indication: MYOCARDIAL INFARCTION
     Dosage: 40 MG, INTRAVENOUS
     Route: 042
  5. METALYSE [Suspect]
     Indication: THROMBOLYSIS
     Dosage: 40 MG, INTRAVENOUS
     Route: 042
  6. GLYCERYL TRINITRATE (GLYCERYL TRINITRATE) [Concomitant]

REACTIONS (7)
  - DIPLOPIA [None]
  - ECCHYMOSIS [None]
  - EXTRADURAL HAEMATOMA [None]
  - EYE HAEMORRHAGE [None]
  - HEADACHE [None]
  - SUBDURAL HAEMATOMA [None]
  - VISUAL ACUITY REDUCED [None]
